FAERS Safety Report 8800154 (Version 3)
Quarter: 2015Q1

REPORT INFORMATION
  Report Type: Report from Study
  Country: US (occurrence: US)
  Receive Date: 20120921
  Receipt Date: 20150305
  Transmission Date: 20150721
  Serious: Yes (Death)
  Sender: FDA-Public Use
  Company Number: US-ROCHE-1104295

PATIENT
  Sex: Female

DRUGS (13)
  1. AVASTIN [Suspect]
     Active Substance: BEVACIZUMAB
     Indication: MALIGNANT MELANOMA
     Route: 042
     Dates: start: 20090105
  2. NEULASTA [Concomitant]
     Active Substance: PEGFILGRASTIM
     Route: 065
  3. PALONOSETRON HYDROCHLORIDE [Concomitant]
     Active Substance: PALONOSETRON HYDROCHLORIDE
     Route: 042
  4. DEXAMETHASONE SODIUM PHOSPHATE. [Concomitant]
     Active Substance: DEXAMETHASONE SODIUM PHOSPHATE
     Route: 042
  5. ABRAXANE [Concomitant]
     Active Substance: PACLITAXEL
     Route: 042
     Dates: start: 20090105
  6. AVASTIN [Suspect]
     Active Substance: BEVACIZUMAB
     Route: 042
  7. DEXAMETHASONE SODIUM PHOSPHATE. [Concomitant]
     Active Substance: DEXAMETHASONE SODIUM PHOSPHATE
     Route: 042
  8. CARBOPLATIN. [Concomitant]
     Active Substance: CARBOPLATIN
     Route: 042
     Dates: start: 20090105
  9. HEPARIN [Concomitant]
     Active Substance: HEPARIN SODIUM
  10. PACLITAXEL. [Concomitant]
     Active Substance: PACLITAXEL
     Route: 042
  11. SODIUM CHLORIDE. [Concomitant]
     Active Substance: SODIUM CHLORIDE
     Route: 042
  12. LOVENOX [Concomitant]
     Active Substance: ENOXAPARIN SODIUM
  13. FOLIC ACID. [Concomitant]
     Active Substance: FOLIC ACID

REACTIONS (7)
  - Fatigue [Unknown]
  - Oedema peripheral [Unknown]
  - Malaise [Unknown]
  - Off label use [Unknown]
  - Disease progression [Fatal]
  - Neutropenia [Unknown]
  - Epistaxis [Unknown]
